FAERS Safety Report 19507889 (Version 2)
Quarter: 2021Q4

REPORT INFORMATION
  Report Type: Spontaneous
  Country: GB (occurrence: GB)
  Receive Date: 20210708
  Receipt Date: 20211019
  Transmission Date: 20220303
  Serious: No
  Sender: FDA-Public Use
  Company Number: GB-GW PHARMA-202106GBGW03134

PATIENT

DRUGS (14)
  1. CANNABIDIOL [Interacting]
     Active Substance: CANNABIDIOL
     Indication: Lennox-Gastaut syndrome
     Dosage: 130 MILLIGRAM, BID
     Route: 048
     Dates: start: 20210527, end: 2021
  2. CANNABIDIOL [Interacting]
     Active Substance: CANNABIDIOL
     Indication: Tuberous sclerosis complex
     Dosage: UNK, DOSE INCREASED
     Route: 048
     Dates: start: 2021
  3. CANNABIDIOL [Interacting]
     Active Substance: CANNABIDIOL
     Dosage: 130 MILLIGRAM, BID
     Route: 048
     Dates: start: 202106
  4. CANNABIDIOL [Interacting]
     Active Substance: CANNABIDIOL
     Dosage: 400 MILLIGRAM, BID
     Route: 048
     Dates: start: 20210811
  5. EVEROLIMUS [Interacting]
     Active Substance: EVEROLIMUS
     Indication: Product used for unknown indication
     Dosage: 5 MILLIGRAM, QD
     Route: 065
     Dates: end: 2021
  6. EVEROLIMUS [Interacting]
     Active Substance: EVEROLIMUS
     Dosage: 5 MILLIGRAM, QOD (DOSE DECREASED)
     Route: 065
     Dates: start: 2021
  7. EVEROLIMUS [Interacting]
     Active Substance: EVEROLIMUS
     Dosage: 5 MILLIGRAM, QD
     Route: 065
     Dates: start: 202104
  8. EVEROLIMUS [Interacting]
     Active Substance: EVEROLIMUS
     Dosage: 5 MILLIGRAM, QD. STOPED FOR 4 DAYS BECAUSE OF MOUTH ULCERS THEN RESTARTED ON 5 MG  EVERY OTHER DAY
     Route: 065
     Dates: start: 202106
  9. EVEROLIMUS [Interacting]
     Active Substance: EVEROLIMUS
     Dosage: 5 MILLIGRAM EVERY OTHER DAY
     Route: 065
     Dates: start: 20210811
  10. LACOSAMIDE [Concomitant]
     Active Substance: LACOSAMIDE
     Indication: Product used for unknown indication
     Dosage: 250 MG, AM AND 250 MG PM
     Route: 065
  11. PERAMPANEL [Concomitant]
     Active Substance: PERAMPANEL
     Indication: Product used for unknown indication
     Dosage: 4 MG, QD
     Route: 048
  12. DIAZEPAM [Concomitant]
     Active Substance: DIAZEPAM
     Indication: Product used for unknown indication
     Dosage: 5 OR 10 MG PRN, USED DAILY
     Route: 054
  13. MIDAZOLAM [Concomitant]
     Active Substance: MIDAZOLAM
     Indication: Product used for unknown indication
     Dosage: UNK
     Route: 002
  14. CLOBAZAM [Concomitant]
     Active Substance: CLOBAZAM
     Indication: Product used for unknown indication
     Dosage: PRN
     Route: 065

REACTIONS (2)
  - Mouth ulceration [Recovered/Resolved]
  - Drug interaction [Unknown]

NARRATIVE: CASE EVENT DATE: 20210101
